FAERS Safety Report 20946447 (Version 1)
Quarter: 2022Q2

REPORT INFORMATION
  Report Type: Spontaneous
  Country: US (occurrence: US)
  Receive Date: 20220610
  Receipt Date: 20220610
  Transmission Date: 20220721
  Serious: No
  Sender: FDA-Public Use
  Company Number: US-GSKCCFUS-Case-01396138_AE-80467

PATIENT
  Sex: Male

DRUGS (2)
  1. BENLYSTA [Suspect]
     Active Substance: BELIMUMAB
     Indication: Product used for unknown indication
     Dosage: 1 DF, WE
     Dates: start: 2022
  2. MUCINEX [Suspect]
     Active Substance: GUAIFENESIN
     Indication: Product used for unknown indication
     Dosage: UNK

REACTIONS (11)
  - Dyspnoea [Recovered/Resolved]
  - Nasopharyngitis [Recovered/Resolved]
  - Oropharyngeal pain [Not Recovered/Not Resolved]
  - Throat irritation [Recovered/Resolved]
  - Dysphagia [Recovered/Resolved]
  - Body temperature increased [Recovered/Resolved]
  - Chest discomfort [Not Recovered/Not Resolved]
  - Insomnia [Recovered/Resolved]
  - Coronavirus infection [Recovered/Resolved]
  - Epistaxis [Not Recovered/Not Resolved]
  - Haemoptysis [Not Recovered/Not Resolved]

NARRATIVE: CASE EVENT DATE: 20220101
